FAERS Safety Report 9286598 (Version 2)
Quarter: 2013Q2

REPORT INFORMATION
  Report Type: Spontaneous
  Country: NL (occurrence: NL)
  Receive Date: 20130513
  Receipt Date: 20130621
  Transmission Date: 20140414
  Serious: Yes (Other)
  Sender: FDA-Public Use
  Company Number: PHHY2013NL047038

PATIENT
  Sex: Female
  Weight: 62 kg

DRUGS (3)
  1. CIPROFLOXACIN SANDOZ [Suspect]
     Indication: PNEUMONIA
     Dosage: 500 MG, TID
     Dates: start: 20130207, end: 20130212
  2. CIPROFLOXACIN SANDOZ [Suspect]
     Indication: INFLAMMATION
  3. ZALDIAR [Concomitant]

REACTIONS (3)
  - Impaired work ability [Not Recovered/Not Resolved]
  - Tendonitis [Recovered/Resolved]
  - Arthralgia [Not Recovered/Not Resolved]
